FAERS Safety Report 23825059 (Version 1)
Quarter: 2024Q2

REPORT INFORMATION
  Report Type: Spontaneous
  Country: PL (occurrence: PL)
  Receive Date: 20240507
  Receipt Date: 20240507
  Transmission Date: 20240716
  Serious: Yes (Hospitalization)
  Sender: FDA-Public Use
  Company Number: PL-MYLANLABS-2024M1040511

PATIENT
  Age: 42 Year
  Sex: Male
  Weight: 132 kg

DRUGS (17)
  1. DEXMEDETOMIDINE [Suspect]
     Active Substance: DEXMEDETOMIDINE
     Indication: Sedative therapy
     Dosage: 70 MICROGRAM
     Route: 065
  2. DEXMEDETOMIDINE [Suspect]
     Active Substance: DEXMEDETOMIDINE
     Indication: Postoperative analgesia
     Dosage: 50 MICROGRAM, INFUSION
     Route: 065
  3. DEXMEDETOMIDINE [Suspect]
     Active Substance: DEXMEDETOMIDINE
     Dosage: 4 MICROGRAM, QH, INFUSION
     Route: 065
  4. INSULIN NOS [Concomitant]
     Active Substance: INSULIN NOS
     Indication: Diabetes mellitus
     Dosage: UNK
     Route: 065
  5. ACETAMINOPHEN [Concomitant]
     Active Substance: ACETAMINOPHEN
     Indication: Analgesic therapy
     Dosage: 1 GRAM
     Route: 042
  6. ACETAMINOPHEN [Concomitant]
     Active Substance: ACETAMINOPHEN
     Indication: Postoperative analgesia
     Dosage: 1 GRAM, Q6H
     Route: 042
  7. DIPYRONE [Concomitant]
     Active Substance: DIPYRONE
     Indication: Analgesic therapy
     Dosage: 2.5 GRAM
     Route: 042
  8. DIPYRONE [Concomitant]
     Active Substance: DIPYRONE
     Indication: Postoperative analgesia
     Dosage: 1 GRAM
     Route: 042
  9. LIDOCAINE [Concomitant]
     Active Substance: LIDOCAINE
     Indication: Sedative therapy
     Dosage: 100 MILLIGRAM, INFUSION
     Route: 042
  10. LIDOCAINE [Concomitant]
     Active Substance: LIDOCAINE
     Indication: Postoperative analgesia
     Dosage: 500 MILLIGRAM, INFUSION 500 MG OF LIDOCAINE DILUTED IN 0.9% SODIUM CHLORIDE
     Route: 042
  11. LIDOCAINE [Concomitant]
     Active Substance: LIDOCAINE
     Dosage: 40 MILLIGRAM, QH, INFUSION
     Route: 042
  12. BUPIVACAINE [Concomitant]
     Active Substance: BUPIVACAINE
     Indication: Local anaesthesia
     Dosage: 40 MILLILITER
     Route: 065
  13. PROPOFOL [Concomitant]
     Active Substance: PROPOFOL
     Indication: Induction of anaesthesia
     Dosage: 120 MILLIGRAM
     Route: 065
  14. KETAMINE [Concomitant]
     Active Substance: KETAMINE
     Indication: Induction of anaesthesia
     Dosage: 40 MILLIGRAM
     Route: 042
  15. SODIUM CHLORIDE [Concomitant]
     Active Substance: SODIUM CHLORIDE
     Indication: Vehicle solution use
     Dosage: 500 MG OF LIDOCAINE DILUTED IN 0.9% SODIUM CHLORIDE, INFUSION
     Route: 042
  16. MAGNESIUM SULFATE [Concomitant]
     Active Substance: MAGNESIUM SULFATE\MAGNESIUM SULFATE HEPTAHYDRATE
     Indication: Analgesic therapy
     Dosage: 4 GRAM
     Route: 042
  17. ROCURONIUM BROMIDE [Concomitant]
     Active Substance: ROCURONIUM BROMIDE
     Indication: Muscle relaxant therapy
     Dosage: UNK
     Route: 065

REACTIONS (1)
  - Sedation complication [Recovering/Resolving]
